FAERS Safety Report 7522806-2 (Version None)
Quarter: 2011Q2

REPORT INFORMATION
  Report Type: 
  Country: None (occurrence: None)
  Receive Date: 20110603
  Receipt Date: 20110523
  Transmission Date: 20111010
  Serious: Yes (Hospitalization, Other)
  Sender: FDA-Public Use
  Company Number: AT-PFIZER INC-2011111265

PATIENT
  Age: 27 Year
  Sex: Female

DRUGS (18)
  1. OXAZEPAM [Suspect]
     Dosage: UNK MG, 1X/DAY, 50- 150 MG
     Dates: start: 20110317, end: 20110325
  2. TIZANIDINE HCL [Suspect]
     Dosage: 6 MG, 1X/DAY
     Route: 048
     Dates: start: 20110215, end: 20110317
  3. RISPERDAL [Suspect]
     Dosage: UNK
     Dates: start: 20110210, end: 20110221
  4. ZIPRASIDONE HCL [Suspect]
     Dosage: UNK MG, 1X/DAY, 20 - 40 MG
     Route: 048
     Dates: start: 20110224, end: 20110316
  5. ABILIFY [Suspect]
     Dosage: 5 MG, DAILY
     Route: 048
     Dates: start: 20110310, end: 20110317
  6. ABILIFY [Suspect]
     Dosage: UNK, 5-10 MG
     Dates: start: 20110412, end: 20110426
  7. EFFEXOR XR [Suspect]
     Dosage: 150 MG, 1X/DAY
     Route: 048
     Dates: start: 20110225, end: 20110317
  8. TOLVON [Concomitant]
     Dosage: UNK MG, 1X/DAY, 30 - 60 MG
     Route: 048
     Dates: start: 20110201, end: 20110302
  9. CARBAMAZEPINE [Suspect]
     Dosage: 450 MG, 1X/DAY
     Route: 048
     Dates: start: 20110223, end: 20110318
  10. ABILIFY [Suspect]
     Dosage: 15 MG, 1X/DAY
     Dates: start: 20110427, end: 20110503
  11. PANTOPRAZOLE [Suspect]
     Dosage: 40 MG, 1X/DAY
     Route: 048
     Dates: start: 20110125, end: 20110317
  12. ABILIFY [Suspect]
     Dosage: 20 MG, 1X/DAY
     Dates: start: 20110404, end: 20110513
  13. ABILIFY [Suspect]
     Dosage: 15 MG, 1X/DAY
     Dates: start: 20110514
  14. TOPAMAX [Suspect]
     Dosage: 50-75 MG DAILY
     Route: 048
     Dates: start: 20110302, end: 20110317
  15. OXAZEPAM [Suspect]
     Dosage: UNK MG, 1X/DAY, 15 - 75 MG
     Route: 048
     Dates: start: 20110125, end: 20110316
  16. VALPROIC ACID [Concomitant]
     Dosage: UNK MG, 1X/DAY, 500 - 1000 MG
     Dates: start: 20110325, end: 20110417
  17. ZIPRASIDONE HCL [Suspect]
     Dosage: UNK MG, 1X/DAY, 20 - 40 MG
     Dates: start: 20110327, end: 20110502
  18. STABLON [Suspect]
     Dosage: 25 MG, 1X/DAY
     Dates: start: 20110321, end: 20110325

REACTIONS (6)
  - LEUKOPENIA [None]
  - DRUG WITHDRAWAL SYNDROME [None]
  - SUICIDE ATTEMPT [None]
  - GALACTORRHOEA [None]
  - WEIGHT INCREASED [None]
  - BLOOD PROLACTIN INCREASED [None]
